FAERS Safety Report 9454110 (Version 2)
Quarter: 2014Q1

REPORT INFORMATION
  Report Type: Spontaneous
  Country: US (occurrence: None)
  Receive Date: 20130807
  Receipt Date: 20140124
  Transmission Date: 20141002
  Serious: Yes (Congenital Anomaly)
  Sender: FDA-Public Use
  Company Number: SYM-2013-07458

PATIENT
  Age: 0 Day
  Sex: Female

DRUGS (1)
  1. WELLBUTRIN XL [Suspect]
     Indication: PRODUCT USED FOR UNKNOWN INDICATION
     Route: 064
     Dates: start: 20071005

REACTIONS (6)
  - Congenital aortic valve stenosis [None]
  - Bicuspid aortic valve [None]
  - Atrial septal defect [None]
  - Maternal drugs affecting foetus [None]
  - Hyperbilirubinaemia [None]
  - Hyperkalaemia [None]
